FAERS Safety Report 8248791 (Version 4)
Quarter: 2013Q2

REPORT INFORMATION
  Report Type: Report from Study
  Country: DE (occurrence: DE)
  Receive Date: 20111117
  Receipt Date: 20130409
  Transmission Date: 20140414
  Serious: Yes (Hospitalization, Other)
  Sender: FDA-Public Use
  Company Number: PHHO2011DE018801

PATIENT
  Sex: 0

DRUGS (5)
  1. AMN107 [Suspect]
     Indication: CHRONIC MYELOID LEUKAEMIA
     Dosage: UNK
     Dates: start: 20051103
  2. AMARYL [Suspect]
     Indication: DIABETES MELLITUS
     Dosage: UNK
  3. VALORON [Concomitant]
     Indication: PAIN
     Dosage: UNK
  4. CALCIVIT D [Concomitant]
     Indication: OSTEOPOROSIS
  5. NOVALGIN [Concomitant]
     Indication: PAIN

REACTIONS (2)
  - Circulatory collapse [Unknown]
  - Loss of consciousness [Unknown]
